FAERS Safety Report 21517574 (Version 1)
Quarter: 2022Q4

REPORT INFORMATION
  Report Type: Spontaneous
  Country: IL (occurrence: IL)
  Receive Date: 20221028
  Receipt Date: 20221028
  Transmission Date: 20230113
  Serious: Yes (Hospitalization)
  Sender: FDA-Public Use
  Company Number: IL-CELLTRION INC.-2022IL015371

PATIENT

DRUGS (2)
  1. INFLIXIMAB [Suspect]
     Active Substance: INFLIXIMAB
     Indication: Colitis ulcerative
     Dosage: LESS THAN A MONTH UNTIL FLARE-UP
  2. PURINETHOL [Concomitant]
     Active Substance: MERCAPTOPURINE
     Indication: Colitis ulcerative
     Dosage: 50 MILLIGRAM, QD

REACTIONS (2)
  - Condition aggravated [Unknown]
  - Product availability issue [Unknown]
